FAERS Safety Report 10996763 (Version 1)
Quarter: 2015Q1

REPORT INFORMATION
  Report Type: Spontaneous
  Country: US (occurrence: None)
  Receive Date: 20150331
  Receipt Date: 20150331
  Transmission Date: 20150721
  Serious: Yes (Hospitalization)
  Sender: FDA-Public Use
  Company Number: PHEH2014US013895

PATIENT
  Age: 73 Year
  Sex: Male
  Weight: 143.7 kg

DRUGS (1)
  1. EXELON PATCH [Suspect]
     Active Substance: RIVASTIGMINE
     Indication: DEMENTIA
     Route: 062
     Dates: start: 20140507

REACTIONS (1)
  - Seizure [None]

NARRATIVE: CASE EVENT DATE: 20140709
